FAERS Safety Report 9063773 (Version 2)
Quarter: 2013Q1

REPORT INFORMATION
  Report Type: Spontaneous
  Country: US (occurrence: US)
  Receive Date: 20130213
  Receipt Date: 20130328
  Transmission Date: 20140127
  Serious: Yes (Death, Hospitalization, Other)
  Sender: FDA-Public Use
  Company Number: US-ASTELLAS-2013US001543

PATIENT
  Age: 40 None
  Sex: Male

DRUGS (4)
  1. TARCEVA [Suspect]
     Indication: PANCREATIC CARCINOMA
     Dosage: UNK
     Route: 048
  2. GEMCITABINE HCL [Concomitant]
     Indication: PRODUCT USED FOR UNKNOWN INDICATION
     Dosage: 1000 MG/M2, UNK
  3. GEMCITABINE HCL [Concomitant]
     Dosage: 800 MG/M2, UNK
  4. XELODA [Concomitant]
     Indication: PRODUCT USED FOR UNKNOWN INDICATION
     Dosage: UNK
     Route: 065

REACTIONS (13)
  - Sepsis [Fatal]
  - Hypotension [Unknown]
  - Bile duct obstruction [Unknown]
  - Intestinal ischaemia [Unknown]
  - Intestinal perforation [Fatal]
  - Ascites [Unknown]
  - Constipation [Unknown]
  - Asthenia [Unknown]
  - Vomiting [Unknown]
  - Nausea [Unknown]
  - Cachexia [Unknown]
  - Blood bilirubin increased [Unknown]
  - Decreased appetite [Unknown]
